FAERS Safety Report 9774335 (Version 1)
Quarter: 2013Q4

REPORT INFORMATION
  Report Type: Spontaneous
  Country: US (occurrence: US)
  Receive Date: 20131220
  Receipt Date: 20131220
  Transmission Date: 20140711
  Serious: Yes (Other)
  Sender: FDA-Public Use
  Company Number: US-GLAXOSMITHKLINE-A1051840A

PATIENT
  Age: 43 Year
  Sex: Male

DRUGS (2)
  1. TAFINLAR [Suspect]
     Indication: NEOPLASM MALIGNANT
     Dosage: 150MG UNKNOWN
     Route: 065
     Dates: start: 201307
  2. MEKINIST [Suspect]
     Indication: NEOPLASM MALIGNANT
     Dosage: 2MG UNKNOWN
     Route: 065
     Dates: start: 201307

REACTIONS (2)
  - Malignant neoplasm progression [Unknown]
  - Condition aggravated [Unknown]
